FAERS Safety Report 7424019-1 (Version None)
Quarter: 2011Q2

REPORT INFORMATION
  Report Type: 
  Country: None (occurrence: None)
  Receive Date: 20110419
  Receipt Date: 20110324
  Transmission Date: 20111010
  Serious: No
  Sender: FDA-Public Use
  Company Number: US-B.I. PHARMACEUTICALS,INC./RIDGEFIELD-2011-BP-09172BP

PATIENT
  Age: 81 Year
  Sex: Female

DRUGS (14)
  1. VIT D [Concomitant]
     Indication: PROPHYLAXIS
  2. CLONAZEPAM [Concomitant]
     Indication: ANXIETY
     Route: 048
     Dates: start: 20070101
  3. COQ10 [Concomitant]
     Indication: ROUTINE HEALTH MAINTENANCE
     Dosage: 100 MG
     Route: 048
     Dates: start: 20070101
  4. EVISTA [Concomitant]
     Indication: ROUTINE HEALTH MAINTENANCE
     Dosage: 60 MG
     Route: 048
     Dates: start: 20070101
  5. VIT D [Concomitant]
     Indication: BONE DENSITY ABNORMAL
     Route: 048
     Dates: start: 20070101
  6. PRADAXA [Suspect]
     Indication: ATRIAL FIBRILLATION
     Dosage: 300 MG
     Route: 048
     Dates: start: 20110317
  7. FLECAINIDE ACETATE [Concomitant]
     Indication: ATRIAL FIBRILLATION
     Dosage: 80 MG
     Route: 048
     Dates: start: 20070101
  8. EFFEXOR [Concomitant]
     Indication: ANXIETY
     Dosage: 75 MG
     Route: 048
     Dates: start: 20070101
  9. MELOXICAM [Concomitant]
     Indication: ARTHRITIS
     Dosage: 7.5 MG
     Route: 048
     Dates: start: 20070101
  10. CALCIUM 600 MG WITH VIT D [Concomitant]
     Indication: BONE DENSITY ABNORMAL
     Dosage: 400 MG
     Route: 048
     Dates: start: 20070101
  11. CRESTOR [Concomitant]
     Indication: BLOOD CHOLESTEROL INCREASED
     Route: 048
     Dates: start: 20070101
  12. COZAAR [Concomitant]
     Indication: HYPERTENSION
     Dosage: 25 MG
     Route: 048
     Dates: start: 20070101
  13. HEMATINIC TL [Concomitant]
     Indication: PROPHYLAXIS
     Route: 048
     Dates: start: 20070101
  14. SYNTHROID [Concomitant]
     Indication: HYPOTHYROIDISM
     Dosage: 75 MCG
     Route: 048

REACTIONS (3)
  - ABDOMINAL DISCOMFORT [None]
  - DIARRHOEA [None]
  - FATIGUE [None]
